FAERS Safety Report 14317951 (Version 6)
Quarter: 2019Q2

REPORT INFORMATION
  Report Type: Spontaneous
  Country: JP (occurrence: JP)
  Receive Date: 20171222
  Receipt Date: 20190402
  Transmission Date: 20190711
  Serious: Yes (Congenital Anomaly, Other)
  Sender: FDA-Public Use
  Company Number: JP-BAYER-2017-242642

PATIENT
  Age: 0 Year
  Sex: Male

DRUGS (14)
  1. PREDNISOLONE. [Suspect]
     Active Substance: PREDNISOLONE
     Indication: NECROTISING RETINITIS
     Dosage: DAILY DOSE 50MG
     Route: 064
  2. PREDNISOLONE. [Suspect]
     Active Substance: PREDNISOLONE
     Indication: NECROTISING RETINITIS
     Dosage: DAILY DOSE 15MG
     Route: 064
  3. VALTREX [Suspect]
     Active Substance: VALACYCLOVIR HYDROCHLORIDE
     Indication: NECROTISING RETINITIS
     Dosage: 1000 MG, TID
     Route: 064
     Dates: start: 20170513
  4. VICCLOX [ACICLOVIR] [Concomitant]
     Indication: NECROTISING RETINITIS
     Dosage: DAILY DOSE 1500 MG
     Route: 064
     Dates: start: 20170422, end: 20170513
  5. FAMOTIDINE. [Concomitant]
     Active Substance: FAMOTIDINE
     Dosage: 20 MG, BID
     Route: 064
     Dates: start: 20170422, end: 20170727
  6. PREDNISOLONE. [Suspect]
     Active Substance: PREDNISOLONE
     Indication: NECROTISING RETINITIS
     Dosage: DAILY DOSE 20MG
     Route: 064
     Dates: start: 20170519
  7. BETAMETHASONE. [Suspect]
     Active Substance: BETAMETHASONE
     Indication: NECROTISING RETINITIS
     Route: 064
  8. PREDNISOLONE. [Suspect]
     Active Substance: PREDNISOLONE
     Indication: NECROTISING RETINITIS
     Dosage: DAILY DOSE 60 MG
     Route: 064
     Dates: start: 20170426
  9. PREDNISOLONE. [Suspect]
     Active Substance: PREDNISOLONE
     Indication: NECROTISING RETINITIS
     Dosage: DAILY DOSE 37.5MG
     Route: 064
     Dates: end: 20170512
  10. PREDNISOLONE. [Suspect]
     Active Substance: PREDNISOLONE
     Indication: NECROTISING RETINITIS
     Dosage: DAILY DOSE 10MG
     Route: 064
     Dates: end: 20170518
  11. SOL-MELCORT [Suspect]
     Active Substance: METHYLPREDNISOLONE SODIUM SUCCINATE
     Indication: NECROTISING RETINITIS
     Dosage: DAILY DOSE 50 MG
     Route: 064
     Dates: start: 20170422, end: 20170425
  12. PREDNISOLONE. [Suspect]
     Active Substance: PREDNISOLONE
     Indication: NECROTISING RETINITIS
     Dosage: DAILY DOSE 25MG
     Route: 064
     Dates: start: 20170513
  13. BAYASPIRIN 100 MG [Suspect]
     Active Substance: ASPIRIN
     Indication: NECROTISING RETINITIS
     Dosage: 100 MG, QD
     Route: 064
     Dates: start: 20170422, end: 20170519
  14. PREDNISOLONE. [Suspect]
     Active Substance: PREDNISOLONE
     Indication: NECROTISING RETINITIS
     Dosage: DAILY DOSE 12.5MG
     Route: 064

REACTIONS (6)
  - Umbilical hernia [None]
  - Foetal growth restriction [Not Recovered/Not Resolved]
  - Premature baby [None]
  - Foetal exposure during pregnancy [None]
  - Jaundice neonatal [None]
  - Low birth weight baby [None]

NARRATIVE: CASE EVENT DATE: 20170422
